FAERS Safety Report 7049810-5 (Version None)
Quarter: 2010Q4

REPORT INFORMATION
  Report Type: 
  Country: None (occurrence: None)
  Receive Date: 20101018
  Receipt Date: 20100722
  Transmission Date: 20110411
  Serious: No
  Sender: FDA-Public Use
  Company Number: US-BAYER-201028127NA

PATIENT
  Age: 64 Year
  Sex: Female

DRUGS (1)
  1. BETASERON [Suspect]
     Indication: RELAPSING-REMITTING MULTIPLE SCLEROSIS
     Dosage: AS USED: 8 MG
     Route: 058
     Dates: start: 19940101

REACTIONS (3)
  - INJECTION SITE DISCOMFORT [None]
  - INJECTION SITE MASS [None]
  - INJECTION SITE REACTION [None]
